FAERS Safety Report 17809392 (Version 1)
Quarter: 2020Q2

REPORT INFORMATION
  Report Type: Spontaneous
  Country: US (occurrence: US)
  Receive Date: 20200521
  Receipt Date: 20200521
  Transmission Date: 20200714
  Serious: No
  Sender: FDA-Public Use
  Company Number: US-GLAXOSMITHKLINE-US2020084197

PATIENT
  Age: 87 Year
  Sex: Female

DRUGS (1)
  1. INCRUSE ELLIPTA [Suspect]
     Active Substance: UMECLIDINIUM BROMIDE
     Indication: CHRONIC OBSTRUCTIVE PULMONARY DISEASE
     Dosage: 1 PUFF(S), 1D
     Route: 055
     Dates: start: 20200514

REACTIONS (4)
  - Cough [Recovered/Resolved]
  - Product taste abnormal [Unknown]
  - Drug intolerance [Unknown]
  - Choking sensation [Unknown]

NARRATIVE: CASE EVENT DATE: 202005
